FAERS Safety Report 5785348-0 (Version None)
Quarter: 2008Q2

REPORT INFORMATION
  Report Type: 
  Country: None (occurrence: None)
  Receive Date: 20080620
  Receipt Date: 20080620
  Transmission Date: 20081010
  Serious: Yes (Life-Threatening, Hospitalization)
  Sender: FDA-Public Use
  Company Number: None

PATIENT
  Age: 61 Year
  Sex: Male
  Weight: 82.5547 kg

DRUGS (1)
  1. FAMCICLOVIR [Suspect]
     Indication: HERPES ZOSTER
     Dosage: 500 MG 3 X PER DAY PO
     Route: 048
     Dates: start: 20071015, end: 20071021

REACTIONS (2)
  - GASTRITIS [None]
  - PANCREATITIS ACUTE [None]
